FAERS Safety Report 4801116-8 (Version None)
Quarter: 2005Q4

REPORT INFORMATION
  Report Type: 
  Country: None (occurrence: None)
  Receive Date: 20051017
  Receipt Date: 20050928
  Transmission Date: 20060501
  Serious: Yes (Death, Hospitalization)
  Sender: FDA-Public Use
  Company Number: PHHO2005JP15367

PATIENT
  Age: 88 Year
  Sex: Female

DRUGS (2)
  1. PARIET [Suspect]
     Indication: REFLUX OESOPHAGITIS
     Dosage: 10 MG/DAY
     Route: 048
     Dates: start: 20030721, end: 20050706
  2. DIOVAN [Suspect]
     Indication: HYPERTENSION
     Dosage: 80 MG/DAY
     Route: 048
     Dates: start: 20030702, end: 20050706

REACTIONS (3)
  - ANAEMIA HAEMOLYTIC AUTOIMMUNE [None]
  - DEPRESSION [None]
  - PNEUMONIA [None]
